FAERS Safety Report 7033821-X (Version None)
Quarter: 2010Q4

REPORT INFORMATION
  Report Type: 
  Country: None (occurrence: None)
  Receive Date: 20101007
  Receipt Date: 20100831
  Transmission Date: 20110411
  Serious: Yes (Death, Other)
  Sender: FDA-Public Use
  Company Number: US-BAXTER-2010BH022664

PATIENT
  Sex: Male

DRUGS (2)
  1. HEPARIN SODIUM INJECTION [Suspect]
     Indication: DIALYSIS
     Route: 065
     Dates: start: 20070222, end: 20070927
  2. HEPARIN SODIUM INJECTION [Suspect]
     Route: 065
     Dates: start: 20070101, end: 20070201

REACTIONS (2)
  - DEATH [None]
  - HYPERSENSITIVITY [None]
